FAERS Safety Report 10690143 (Version 1)
Quarter: 2015Q1

REPORT INFORMATION
  Report Type: Spontaneous
  Country: US (occurrence: None)
  Receive Date: 20150102
  Receipt Date: 20150102
  Transmission Date: 20150720
  Serious: Yes (Other)
  Sender: FDA-Public Use
  Company Number: None

PATIENT
  Sex: Female
  Weight: 48.54 kg

DRUGS (2)
  1. VIVELLE DOT [Suspect]
     Active Substance: ESTRADIOL
     Indication: MENOPAUSAL SYMPTOMS
     Dates: start: 20141126, end: 20141222
  2. VIVELLE DOT [Suspect]
     Active Substance: ESTRADIOL
     Indication: NIGHT SWEATS
     Dates: start: 20141126, end: 20141222

REACTIONS (3)
  - Lip swelling [None]
  - Swelling face [None]
  - Stomatitis [None]
